FAERS Safety Report 5400226-4 (Version None)
Quarter: 2007Q3

REPORT INFORMATION
  Report Type: 
  Country: None (occurrence: None)
  Receive Date: 20070727
  Receipt Date: 20070727
  Transmission Date: 20080115
  Serious: Yes (Life-Threatening, Hospitalization, Disabling, Congenital Anomaly)
  Sender: FDA-Public Use
  Company Number: None

PATIENT
  Age: 1 Day
  Sex: Female
  Weight: 3.1752 kg

DRUGS (1)
  1. ZOLOFT [Suspect]
     Indication: POSTPARTUM DEPRESSION
     Dosage: 50 MG DAILY PO
     Route: 048
     Dates: start: 20041004, end: 20060415

REACTIONS (8)
  - DRUG EXPOSURE DURING PREGNANCY [None]
  - FATIGUE [None]
  - FINE MOTOR DELAY [None]
  - PERSONALITY DISORDER [None]
  - PREGNANCY [None]
  - SPEECH DISORDER DEVELOPMENTAL [None]
  - TRANSPOSITION OF THE GREAT VESSELS [None]
  - VENTRICULAR HYPOPLASIA [None]
